FAERS Safety Report 18921075 (Version 2)
Quarter: 2021Q1

REPORT INFORMATION
  Report Type: Spontaneous
  Country: IT (occurrence: IT)
  Receive Date: 20210222
  Receipt Date: 20210224
  Transmission Date: 20210420
  Serious: Yes (Death, Hospitalization, Other)
  Sender: FDA-Public Use
  Company Number: NVSC2021IT040262

PATIENT
  Age: 42 Year
  Sex: Male

DRUGS (4)
  1. ENTECAVIR. [Suspect]
     Active Substance: ENTECAVIR
     Indication: HEPATITIS B
     Dosage: 0.5 MG, QD
     Route: 065
  2. MYCOPHENOLATE MOFETIL. [Suspect]
     Active Substance: MYCOPHENOLATE MOFETIL
     Indication: GENERAL PHYSICAL HEALTH DETERIORATION
     Dosage: 2, QD
     Route: 065
  3. PEMBROLIZUMAB. [Suspect]
     Active Substance: PEMBROLIZUMAB
     Indication: METASTATIC NEOPLASM
     Dosage: UNK
     Route: 065
  4. MYCOPHENOLATE MOFETIL. [Suspect]
     Active Substance: MYCOPHENOLATE MOFETIL
     Indication: CONDITION AGGRAVATED
     Dosage: 1000 MG
     Route: 065

REACTIONS (8)
  - Drug ineffective [Fatal]
  - Hepatorenal syndrome [Fatal]
  - Thrombocytopenia [Unknown]
  - Lymphocytosis [Unknown]
  - Multiple organ dysfunction syndrome [Fatal]
  - Off label use [Unknown]
  - Hepatotoxicity [Unknown]
  - Thyroid disorder [Unknown]
